FAERS Safety Report 10563133 (Version 2)
Quarter: 2014Q4

REPORT INFORMATION
  Report Type: Spontaneous
  Country: US (occurrence: US)
  Receive Date: 20141104
  Receipt Date: 20141120
  Transmission Date: 20150529
  Serious: No
  Sender: FDA-Public Use
  Company Number: US-009507513-1410USA015826

PATIENT
  Sex: Female

DRUGS (1)
  1. PROVENTIL [Suspect]
     Active Substance: ALBUTEROL
     Indication: RESPIRATORY THERAPY
     Dosage: 90 MICROGRAM, UNK
     Route: 055

REACTIONS (4)
  - Drug dose omission [Unknown]
  - Incorrect dose administered by device [Unknown]
  - No adverse event [Unknown]
  - Product quality issue [Unknown]
